FAERS Safety Report 6826854-7 (Version None)
Quarter: 2010Q3

REPORT INFORMATION
  Report Type: 
  Country: None (occurrence: None)
  Receive Date: 20100709
  Receipt Date: 20100708
  Transmission Date: 20110219
  Serious: Yes (Life-Threatening, Hospitalization, Other)
  Sender: FDA-Public Use
  Company Number: PHHO2010BR08885

PATIENT
  Sex: Male
  Weight: 83 kg

DRUGS (1)
  1. TASIGNA [Suspect]
     Indication: CHRONIC MYELOID LEUKAEMIA
     Dosage: 800 MG
     Route: 048
     Dates: start: 20091211, end: 20100610

REACTIONS (3)
  - ANGINA PECTORIS [None]
  - BRADYCARDIA [None]
  - DIZZINESS [None]
